FAERS Safety Report 5580557-8 (Version None)
Quarter: 2008Q1

REPORT INFORMATION
  Report Type: 
  Country: None (occurrence: None)
  Receive Date: 20080103
  Receipt Date: 20071220
  Transmission Date: 20080703
  Serious: No
  Sender: FDA-Public Use
  Company Number: FI-PFIZER INC-2007101444

PATIENT
  Age: 77 Year
  Sex: Male

DRUGS (2)
  1. ATORVASTATIN [Suspect]
     Dosage: DAILY DOSE:40MG
  2. FLUCONAZOLE [Suspect]
     Dosage: DAILY DOSE:150MG
     Route: 048

REACTIONS (1)
  - NO ADVERSE EVENT [None]
